FAERS Safety Report 16722208 (Version 5)
Quarter: 2019Q4

REPORT INFORMATION
  Report Type: Spontaneous
  Country: US (occurrence: US)
  Receive Date: 20190820
  Receipt Date: 20191011
  Transmission Date: 20200122
  Serious: No
  Sender: FDA-Public Use
  Company Number: US-PFIZER INC-2019354475

PATIENT
  Age: 81 Year
  Sex: Male
  Weight: 69.85 kg

DRUGS (4)
  1. BUMETANIDE. [Concomitant]
     Active Substance: BUMETANIDE
     Indication: DIURETIC THERAPY
     Dosage: 1 MG, UNK
     Dates: start: 2018
  2. VYNDAQEL [Suspect]
     Active Substance: TAFAMIDIS MEGLUMINE
     Indication: AMYLOIDOSIS
     Dosage: 80 MG, 1X/DAY (FOUR 20MG BY MOUTH, I TAKE THEM IN THE MORNING/FIRST THING IN THE MORNING)
     Route: 048
     Dates: start: 2019
  3. VYNDAQEL [Suspect]
     Active Substance: TAFAMIDIS MEGLUMINE
     Indication: FAMILIAL AMYLOIDOSIS
     Dosage: 80 MG, DAILY [20 MG, 4 CAPSULES DAILY]
     Route: 048
     Dates: start: 201907
  4. VYNDAQEL [Suspect]
     Active Substance: TAFAMIDIS MEGLUMINE
     Indication: AMYLOIDOSIS
     Dosage: UNK
     Dates: start: 2019

REACTIONS (3)
  - Somnolence [Not Recovered/Not Resolved]
  - Product dose omission [Unknown]
  - Fatigue [Not Recovered/Not Resolved]

NARRATIVE: CASE EVENT DATE: 2019
